FAERS Safety Report 21618085 (Version 1)
Quarter: 2022Q4

REPORT INFORMATION
  Report Type: Report from Study
  Country: US (occurrence: US)
  Receive Date: 20221119
  Receipt Date: 20221119
  Transmission Date: 20230112
  Serious: Yes (Other)
  Sender: FDA-Public Use
  Company Number: US-002147023-NVSC2022US259440

PATIENT
  Sex: Male
  Weight: 72.5 kg

DRUGS (1)
  1. COSENTYX [Suspect]
     Active Substance: SECUKINUMAB
     Indication: Juvenile psoriatic arthritis
     Dosage: 150 MG
     Route: 058

REACTIONS (3)
  - Juvenile psoriatic arthritis [Not Recovered/Not Resolved]
  - Symptom recurrence [Not Recovered/Not Resolved]
  - Treatment failure [Unknown]
